FAERS Safety Report 4359576-5 (Version None)
Quarter: 2004Q2

REPORT INFORMATION
  Report Type: 
  Country: None (occurrence: None)
  Receive Date: 20040517
  Receipt Date: 20040517
  Transmission Date: 20050107
  Serious: Yes (Life-Threatening, Hospitalization)
  Sender: FDA-Public Use
  Company Number: None

PATIENT
  Age: 69 Year
  Sex: Male
  Weight: 79 kg

DRUGS (9)
  1. FRAGMIN [Suspect]
     Indication: THROMBOSIS PROPHYLAXIS
     Dosage: 2500 UNITS QDAY SUBCUTANEOUS
     Route: 058
     Dates: start: 20040303, end: 20040319
  2. VASOTEC [Concomitant]
  3. ISORDIL [Concomitant]
  4. REGLAN [Concomitant]
  5. ZELNORM [Concomitant]
  6. DUONEB [Concomitant]
  7. SOLU-MEDROL [Concomitant]
  8. PROTONIX [Concomitant]
  9. VANCOMYCIN [Concomitant]

REACTIONS (2)
  - DEEP VEIN THROMBOSIS [None]
  - PULMONARY OEDEMA [None]
